FAERS Safety Report 8488896-8 (Version None)
Quarter: 2012Q3

REPORT INFORMATION
  Report Type: 
  Country: None (occurrence: None)
  Receive Date: 20120705
  Receipt Date: 20120629
  Transmission Date: 20120928
  Serious: Yes (Hospitalization, Other)
  Sender: FDA-Public Use
  Company Number: BR-PFIZER INC-2012157910

PATIENT
  Age: 72 Year
  Sex: Male
  Weight: 92 kg

DRUGS (5)
  1. METFORMIN HCL [Concomitant]
     Dosage: ONE TABLET DAILY
     Dates: start: 20110801
  2. MODURETIC 5-50 [Concomitant]
     Dosage: ONE TABLET DAILY
  3. LIPITOR [Suspect]
     Dosage: 20 MG, ONE TABLET DAILY
     Route: 048
     Dates: start: 20060903
  4. SOMALGIN [Concomitant]
     Dosage: ONE TABLET DAILY
     Dates: start: 20110801
  5. METOPROLOL SUCCINATE [Concomitant]
     Dosage: 500 MG, 1X/DAY
     Dates: start: 20110801

REACTIONS (5)
  - VENOUS OCCLUSION [None]
  - CARDIAC DISORDER [None]
  - PULMONARY OEDEMA [None]
  - DIARRHOEA [None]
  - BLOOD PRESSURE DECREASED [None]
